FAERS Safety Report 9264111 (Version 1)
Quarter: 2013Q2

REPORT INFORMATION
  Report Type: Spontaneous
  Country: US (occurrence: US)
  Receive Date: 20130430
  Receipt Date: 20130430
  Transmission Date: 20140414
  Serious: Yes (Other)
  Sender: FDA-Public Use
  Company Number: US-JNJFOC-20130416564

PATIENT
  Age: 47 Year
  Sex: Female
  Weight: 71.66 kg

DRUGS (19)
  1. IBUPROFEN [Suspect]
     Indication: PAIN
     Route: 065
  2. IBUPROFEN [Suspect]
     Indication: OSTEOARTHRITIS
     Route: 065
  3. IBUPROFEN [Suspect]
     Indication: FIBROMYALGIA
     Route: 065
  4. LYRICA [Suspect]
     Indication: PAIN
     Route: 065
  5. LYRICA [Suspect]
     Indication: OSTEOARTHRITIS
     Route: 065
  6. LYRICA [Suspect]
     Indication: FIBROMYALGIA
     Route: 065
  7. CYMBALTA [Suspect]
     Indication: PAIN
     Route: 065
  8. CYMBALTA [Suspect]
     Indication: OSTEOARTHRITIS
     Route: 065
  9. CYMBALTA [Suspect]
     Indication: FIBROMYALGIA
     Route: 065
  10. VICODIN [Suspect]
     Indication: PAIN
     Route: 065
  11. VICODIN [Suspect]
     Indication: OSTEOARTHRITIS
     Route: 065
  12. VICODIN [Suspect]
     Indication: FIBROMYALGIA
     Route: 065
  13. CELEBREX [Suspect]
     Indication: PAIN
     Route: 065
  14. CELEBREX [Suspect]
     Indication: OSTEOARTHRITIS
     Route: 065
  15. CELEBREX [Suspect]
     Indication: FIBROMYALGIA
     Route: 065
  16. MELOXICAM [Suspect]
     Indication: PAIN
     Route: 065
  17. MELOXICAM [Suspect]
     Indication: OSTEOARTHRITIS
     Route: 065
  18. MELOXICAM [Suspect]
     Indication: FIBROMYALGIA
     Route: 065
  19. BACLOFEN [Concomitant]
     Indication: MUSCLE RELAXANT THERAPY
     Route: 065

REACTIONS (4)
  - Osteoarthritis [Unknown]
  - Drug ineffective [Not Recovered/Not Resolved]
  - Treatment noncompliance [None]
  - Drug administration error [None]
